FAERS Safety Report 13100588 (Version 1)
Quarter: 2017Q1

REPORT INFORMATION
  Report Type: Spontaneous
  Country: PH (occurrence: PH)
  Receive Date: 20170110
  Receipt Date: 20170110
  Transmission Date: 20170428
  Serious: Yes (Other)
  Sender: FDA-Public Use
  Company Number: PH-VALIDUS PHARMACEUTICALS LLC-PH-2017VAL000008

PATIENT
  Age: 29 Year
  Sex: Female

DRUGS (2)
  1. BROMOCRIPTINE MESYLATE [Suspect]
     Active Substance: BROMOCRIPTINE MESYLATE
     Indication: PROLACTIN-PRODUCING PITUITARY TUMOUR
     Dosage: 2.5 MG, QD
  2. BROMOCRIPTINE MESYLATE [Suspect]
     Active Substance: BROMOCRIPTINE MESYLATE
     Dosage: 2.5 MG, TID

REACTIONS (4)
  - Neoplasm progression [Unknown]
  - Visual pathway disorder [Unknown]
  - Amenorrhoea [Unknown]
  - Drug resistance [Unknown]
